FAERS Safety Report 23524700 (Version 1)
Quarter: 2024Q1

REPORT INFORMATION
  Report Type: Report from Study
  Country: US (occurrence: US)
  Receive Date: 20240215
  Receipt Date: 20240215
  Transmission Date: 20240410
  Serious: Yes (Hospitalization)
  Sender: FDA-Public Use
  Company Number: US-ABBVIE-5512471

PATIENT
  Age: 66 Year
  Sex: Female

DRUGS (1)
  1. HUMIRA [Suspect]
     Active Substance: ADALIMUMAB
     Indication: Psoriatic arthropathy
     Route: 058
     Dates: start: 20130701

REACTIONS (8)
  - Loss of consciousness [Unknown]
  - Unevaluable event [Recovered/Resolved]
  - Balance disorder [Unknown]
  - Fall [Unknown]
  - Dizziness [Unknown]
  - Head injury [Unknown]
  - Ear infection [Recovered/Resolved]
  - Fall [Recovered/Resolved]

NARRATIVE: CASE EVENT DATE: 20231001
